FAERS Safety Report 5360203-9 (Version None)
Quarter: 2007Q2

REPORT INFORMATION
  Report Type: 
  Country: None (occurrence: None)
  Receive Date: 20070618
  Receipt Date: 20070605
  Transmission Date: 20071010
  Serious: Yes (Other)
  Sender: FDA-Public Use
  Company Number: PHBS2007CN09542

PATIENT
  Age: 17 Year
  Sex: Male

DRUGS (1)
  1. SEBIVO [Suspect]
     Indication: HEPATITIS B
     Dosage: UNK, UNK
     Route: 048

REACTIONS (2)
  - CONVULSION [None]
  - MUSCULOSKELETAL STIFFNESS [None]
